FAERS Safety Report 19062715 (Version 2)
Quarter: 2021Q1

REPORT INFORMATION
  Report Type: Spontaneous
  Country: CH (occurrence: CH)
  Receive Date: 20210326
  Receipt Date: 20210330
  Transmission Date: 20210420
  Serious: Yes (Other)
  Sender: FDA-Public Use
  Company Number: NVSC2021CH065816

PATIENT
  Sex: Female

DRUGS (2)
  1. PIQRAY [Suspect]
     Active Substance: ALPELISIB
     Indication: BREAST CANCER METASTATIC
     Dosage: 300 MG, QD
     Route: 065
     Dates: start: 20200528
  2. PIQRAY [Suspect]
     Active Substance: ALPELISIB
     Dosage: 250 MG, QD
     Route: 065

REACTIONS (7)
  - Product use issue [Unknown]
  - Malignant neoplasm progression [Unknown]
  - Bone pain [Unknown]
  - Drug ineffective [Unknown]
  - Breast cancer metastatic [Unknown]
  - Diabetes mellitus [Unknown]
  - Diarrhoea [Unknown]
